FAERS Safety Report 10883267 (Version 9)
Quarter: 2015Q2

REPORT INFORMATION
  Report Type: Report from Study
  Country: KR (occurrence: KR)
  Receive Date: 20150303
  Receipt Date: 20150403
  Transmission Date: 20150821
  Serious: Yes (Hospitalization)
  Sender: FDA-Public Use
  Company Number: KR-009507513-1502KOR012116

PATIENT
  Age: 72 Year
  Sex: Female
  Weight: 62.8 kg

DRUGS (12)
  1. AMLODIPINE [Concomitant]
     Active Substance: AMLODIPINE BESYLATE
     Indication: HYPERTENSION
     Dosage: 5 MG, QD
     Route: 048
     Dates: start: 20141110
  2. PEMBROLIZUMAB. [Suspect]
     Active Substance: PEMBROLIZUMAB
     Indication: NON-SMALL CELL LUNG CANCER
     Dosage: 2 MG/KG, Q3W
     Route: 042
     Dates: start: 20150213, end: 20150213
  3. METFORMIN [Concomitant]
     Active Substance: METFORMIN HYDROCHLORIDE
     Indication: DIABETES MELLITUS
     Dosage: 500 MG, QD
     Route: 048
     Dates: start: 20141202
  4. OLMEACT PLUS [Concomitant]
     Indication: HYPERTENSION
     Dosage: 0.5 TABLET, QD
     Route: 048
     Dates: start: 20141201
  5. PEMBROLIZUMAB. [Suspect]
     Active Substance: PEMBROLIZUMAB
     Dosage: 2 MG/KG, Q3W
     Route: 042
     Dates: start: 20150311, end: 20150311
  6. HYDROMORPHONE [Concomitant]
     Active Substance: HYDROMORPHONE
     Indication: NON-CARDIAC CHEST PAIN
     Dosage: 4 MG, ONCE
     Route: 048
     Dates: start: 20150123
  7. MEGESTROL ACETATE. [Concomitant]
     Active Substance: MEGESTROL ACETATE
     Indication: DECREASED APPETITE
     Dosage: 625 MG, QD
     Route: 048
     Dates: start: 20150123, end: 20150215
  8. PRUCALOPRIDE [Concomitant]
     Active Substance: PRUCALOPRIDE
     Indication: CONSTIPATION
     Dosage: 1 MG, QD
     Route: 048
     Dates: start: 20141129
  9. ATORVASTATIN [Concomitant]
     Active Substance: ATORVASTATIN
     Indication: HYPERTENSION
     Dosage: 20 MG, QD
     Route: 048
     Dates: start: 200701
  10. ASPIRIN. [Concomitant]
     Active Substance: ASPIRIN
     Indication: HYPERTENSION
     Dosage: 100 MG, QD
     Route: 048
     Dates: start: 200701, end: 20150224
  11. FENTANYL. [Concomitant]
     Active Substance: FENTANYL
     Indication: NON-CARDIAC CHEST PAIN
     Dosage: 12 MICROGRAM/HOUR. FREQUENCY: OTHER
     Route: 062
     Dates: start: 20150115, end: 20150224
  12. LACTULOSE. [Concomitant]
     Active Substance: LACTULOSE
     Indication: CONSTIPATION
     Dosage: 1 PACK, TID
     Route: 048
     Dates: start: 20141222

REACTIONS (1)
  - Malignant neoplasm progression [Recovering/Resolving]

NARRATIVE: CASE EVENT DATE: 20150323
